FAERS Safety Report 7987469-0 (Version None)
Quarter: 2011Q4

REPORT INFORMATION
  Report Type: 
  Country: None (occurrence: None)
  Receive Date: 20111216
  Receipt Date: 20111205
  Transmission Date: 20120403
  Serious: Yes (Other)
  Sender: FDA-Public Use
  Company Number: PHEH2011US010876

PATIENT
  Sex: Female

DRUGS (1)
  1. SANDOSTATIN [Suspect]

REACTIONS (2)
  - IRON DEFICIENCY ANAEMIA [None]
  - GASTRIC ANTRAL VASCULAR ECTASIA [None]
